FAERS Safety Report 6332476-7 (Version None)
Quarter: 2009Q3

REPORT INFORMATION
  Report Type: 
  Country: None (occurrence: None)
  Receive Date: 20090828
  Receipt Date: 20090821
  Transmission Date: 20100115
  Serious: Yes (Death, Other)
  Sender: FDA-Public Use
  Company Number: JP-BAYER-200912309BYL

PATIENT
  Age: 52 Year
  Sex: Male
  Weight: 65 kg

DRUGS (16)
  1. NEXAVAR [Suspect]
     Indication: HEPATIC NEOPLASM MALIGNANT
     Dosage: TOTAL DAILY DOSE: 800 MG  UNIT DOSE: 200 MG
     Route: 048
     Dates: start: 20090619, end: 20090708
  2. LORFENAMIN [Concomitant]
     Dosage: UNIT DOSE: 60 MG
     Route: 048
     Dates: end: 20090707
  3. SEFTAC [Concomitant]
     Dosage: BEFORE NEXAVAR ADMINISTRATION
     Route: 048
  4. PREDONINE [Concomitant]
     Dosage: UNIT DOSE: 5 MG
     Route: 048
  5. BONZOL [Concomitant]
     Dosage: UNIT DOSE: 100 MG
     Route: 048
  6. PRIMOBOLAN [Concomitant]
     Dosage: UNIT DOSE: 5 MG
     Route: 048
  7. ADONA [Concomitant]
     Dosage: UNIT DOSE: 30 MG
     Route: 048
  8. OXYCONTIN [Concomitant]
     Dosage: UNIT DOSE: 5 MG
     Route: 048
     Dates: start: 20090707, end: 20090709
  9. OXINORM [Concomitant]
     Dosage: UNIT DOSE: 0.5 %
     Route: 048
     Dates: start: 20090707, end: 20090709
  10. TAURINE [Concomitant]
     Dosage: UNIT DOSE: 98 %
     Route: 048
     Dates: start: 20090707, end: 20090804
  11. SHAKUYAKU-KANZO-TO [Concomitant]
     Route: 048
     Dates: start: 20090707, end: 20090804
  12. PIARLE [Concomitant]
     Dosage: UNIT DOSE: 65 %
     Route: 048
     Dates: start: 20090708
  13. ALLOID G [Concomitant]
     Route: 048
     Dates: start: 20090708
  14. SOSEGON [Concomitant]
     Route: 048
     Dates: start: 20090710
  15. LEPETAN [Concomitant]
     Indication: PAIN
     Route: 054
     Dates: start: 20090710
  16. RESPLEN [Concomitant]
     Dosage: UNIT DOSE: 20 MG
     Route: 048
     Dates: start: 20090715

REACTIONS (4)
  - HEPATIC NEOPLASM MALIGNANT [None]
  - JAUNDICE CHOLESTATIC [None]
  - PLATELET COUNT DECREASED [None]
  - TUMOUR HAEMORRHAGE [None]
